FAERS Safety Report 25832773 (Version 1)
Quarter: 2025Q3

REPORT INFORMATION
  Report Type: Spontaneous
  Country: EU (occurrence: EU)
  Receive Date: 20250922
  Receipt Date: 20250922
  Transmission Date: 20251021
  Serious: Yes (Life-Threatening)
  Sender: FRESENIUS KABI
  Company Number: None

PATIENT
  Age: 64 Year
  Sex: Female
  Weight: 63 kg

DRUGS (1)
  1. PACLITAXEL [Suspect]
     Active Substance: PACLITAXEL
     Indication: Ovarian cancer
     Dates: start: 20211013, end: 20211013

REACTIONS (2)
  - Erythema [Recovered/Resolved]
  - Feeling hot [Recovered/Resolved]

NARRATIVE: CASE EVENT DATE: 20211013
